FAERS Safety Report 19173408 (Version 2)
Quarter: 2021Q4

REPORT INFORMATION
  Report Type: Spontaneous
  Country: CA (occurrence: CA)
  Receive Date: 20210423
  Receipt Date: 20211014
  Transmission Date: 20220303
  Serious: Yes (Death, Hospitalization, Other)
  Sender: FDA-Public Use
  Company Number: CA-JNJFOC-20210426207

PATIENT
  Age: 77 Year
  Sex: Male
  Weight: 34 kg

DRUGS (9)
  1. UPTRAVI [Suspect]
     Active Substance: SELEXIPAG
     Indication: Pulmonary arterial hypertension
     Route: 048
  2. UPTRAVI [Suspect]
     Active Substance: SELEXIPAG
     Route: 048
  3. UPTRAVI [Suspect]
     Active Substance: SELEXIPAG
     Route: 048
  4. UPTRAVI [Suspect]
     Active Substance: SELEXIPAG
     Route: 048
  5. AMBRISENTAN [Suspect]
     Active Substance: AMBRISENTAN
     Indication: Pulmonary arterial hypertension
     Route: 065
  6. AMBRISENTAN [Suspect]
     Active Substance: AMBRISENTAN
     Indication: Product used for unknown indication
     Route: 065
  7. ADEMPAS [Concomitant]
     Active Substance: RIOCIGUAT
     Indication: Product used for unknown indication
     Route: 065
  8. BUMETANIDE [Concomitant]
     Active Substance: BUMETANIDE
     Indication: Product used for unknown indication
     Route: 065
  9. VITAMIN B12 [Concomitant]
     Active Substance: CYANOCOBALAMIN
     Indication: Product used for unknown indication
     Route: 065

REACTIONS (13)
  - Death [Fatal]
  - Tremor [Fatal]
  - Unevaluable event [Fatal]
  - Hospitalisation [Unknown]
  - Myalgia [Recovering/Resolving]
  - Chills [Recovered/Resolved]
  - Bedridden [Unknown]
  - Pain [Unknown]
  - Fatigue [Recovered/Resolved]
  - Pain in extremity [Unknown]
  - Drug ineffective [Unknown]
  - Product use issue [Unknown]
  - Inappropriate schedule of product administration [Unknown]
